FAERS Safety Report 7152581-5 (Version None)
Quarter: 2010Q4

REPORT INFORMATION
  Report Type: 
  Country: None (occurrence: None)
  Receive Date: 20101213
  Receipt Date: 20101129
  Transmission Date: 20110411
  Serious: Yes (Other)
  Sender: FDA-Public Use
  Company Number: FR-AMGEN-FRASP2010008150

PATIENT

DRUGS (6)
  1. ENBREL [Suspect]
     Indication: PSORIASIS
     Dosage: 50 MG, 2X/WEEK
     Dates: start: 20101001
  2. LOSARTAN [Concomitant]
     Indication: RHINITIS
  3. OMEPRAZOLE [Concomitant]
  4. SERTRALINE [Concomitant]
     Dosage: UNK
     Dates: start: 20080101
  5. LORATADINE [Concomitant]
     Indication: RHINITIS
  6. ZOXAN LP [Concomitant]

REACTIONS (5)
  - BLOOD PRESSURE DECREASED [None]
  - DIZZINESS [None]
  - HYPERHIDROSIS [None]
  - LOSS OF CONSCIOUSNESS [None]
  - MALAISE [None]
